FAERS Safety Report 12191690 (Version 3)
Quarter: 2016Q2

REPORT INFORMATION
  Report Type: Spontaneous
  Country: IE (occurrence: IE)
  Receive Date: 20160318
  Receipt Date: 20160517
  Transmission Date: 20160815
  Serious: Yes (Death, Hospitalization)
  Sender: FDA-Public Use
  Company Number: IE-JNJFOC-20160308702

PATIENT
  Age: 50 Year
  Sex: Female

DRUGS (18)
  1. XEPLION [Suspect]
     Active Substance: PALIPERIDONE PALMITATE
     Indication: PSYCHOTIC DISORDER
     Route: 030
     Dates: start: 20151206
  2. XEPLION [Suspect]
     Active Substance: PALIPERIDONE PALMITATE
     Indication: SCHIZOPHRENIA
     Dosage: DAY 8. INITIATION DOSE.
     Route: 030
  3. XEPLION [Suspect]
     Active Substance: PALIPERIDONE PALMITATE
     Indication: SCHIZOPHRENIA
     Dosage: DAY 1. INITIATION DOSE.
     Route: 030
     Dates: start: 201510
  4. BISOPROLOL FUMARATE. [Concomitant]
     Active Substance: BISOPROLOL FUMARATE
     Dosage: MORNING
     Route: 065
  5. PROCYCLIDINE [Concomitant]
     Active Substance: PROCYCLIDINE
     Route: 065
  6. XEPLION [Suspect]
     Active Substance: PALIPERIDONE PALMITATE
     Indication: PSYCHOTIC DISORDER
     Dosage: DAY 1. INITIATION DOSE.
     Route: 030
     Dates: start: 201510
  7. XEPLION [Suspect]
     Active Substance: PALIPERIDONE PALMITATE
     Indication: SCHIZOPHRENIA
     Route: 030
     Dates: start: 20151206
  8. QUETIAPINE. [Suspect]
     Active Substance: QUETIAPINE
     Indication: SCHIZOPHRENIA
     Route: 065
  9. QUETIAPINE. [Suspect]
     Active Substance: QUETIAPINE
     Indication: SCHIZOPHRENIA
     Dosage: NIGHT
     Route: 065
  10. GLUCOPHAGE [Concomitant]
     Active Substance: METFORMIN HYDROCHLORIDE
     Indication: PRODUCT USED FOR UNKNOWN INDICATION
     Route: 065
  11. ATORVASTATIN [Concomitant]
     Active Substance: ATORVASTATIN
     Dosage: MORNING
     Route: 065
  12. PERINDOPRIL TOSILATE [Concomitant]
     Dosage: MORNING
     Route: 065
  13. XEPLION [Suspect]
     Active Substance: PALIPERIDONE PALMITATE
     Indication: PSYCHOTIC DISORDER
     Dosage: DAY 8. INITIATION DOSE.
     Route: 030
  14. XEPLION [Suspect]
     Active Substance: PALIPERIDONE PALMITATE
     Indication: PSYCHOTIC DISORDER
     Route: 030
     Dates: start: 201510, end: 201511
  15. XEPLION [Suspect]
     Active Substance: PALIPERIDONE PALMITATE
     Indication: SCHIZOPHRENIA
     Route: 030
     Dates: start: 201510, end: 201511
  16. METFORMIN HYDROCHLORIDE. [Concomitant]
     Active Substance: METFORMIN HYDROCHLORIDE
     Route: 065
  17. COVERSYL ARGININE [Concomitant]
     Active Substance: PERINDOPRIL ARGININE
     Dosage: MORNING
     Route: 065
  18. QUETIAPINE. [Suspect]
     Active Substance: QUETIAPINE
     Indication: SCHIZOPHRENIA
     Dosage: MORNING
     Route: 065

REACTIONS (4)
  - Influenza [Fatal]
  - Pulmonary haemorrhage [Fatal]
  - Neutropenia [Not Recovered/Not Resolved]
  - Leukopenia [Not Recovered/Not Resolved]

NARRATIVE: CASE EVENT DATE: 201512
